FAERS Safety Report 4362830-4 (Version None)
Quarter: 2004Q2

REPORT INFORMATION
  Report Type: 
  Country: None (occurrence: None)
  Receive Date: 20040524
  Receipt Date: 20040513
  Transmission Date: 20050107
  Serious: Yes (Other)
  Sender: FDA-Public Use
  Company Number: CA-JNJFOC-20040500468

PATIENT
  Sex: Male

DRUGS (1)
  1. TOPAMAX [Suspect]

REACTIONS (2)
  - CEREBRAL HAEMORRHAGE [None]
  - SUBDURAL HAEMATOMA [None]
